FAERS Safety Report 4722718-3 (Version None)
Quarter: 2005Q3

REPORT INFORMATION
  Report Type: 
  Country: None (occurrence: None)
  Receive Date: 20050719
  Receipt Date: 20040930
  Transmission Date: 20060218
  Serious: Yes (Other)
  Sender: FDA-Public Use
  Company Number: 2004236592US

PATIENT
  Age: 65 Year
  Sex: Female
  Weight: 61.2 kg

DRUGS (3)
  1. CELEBREX [Suspect]
     Indication: ARTHRITIS
     Dosage: 200 MG, QD, ORAL
     Route: 048
  2. ASPIRIN+CAFFEINE(ACETYLSALICYLIC ACID, CAFFEINE) [Suspect]
     Indication: PAIN
     Route: 065
  3. ASPIRIN [Concomitant]

REACTIONS (2)
  - CORONARY ARTERY DISEASE [None]
  - MYOCARDIAL INFARCTION [None]
